FAERS Safety Report 9349838 (Version 1)
Quarter: 2013Q2

REPORT INFORMATION
  Report Type: Spontaneous
  Country: ZA (occurrence: ZA)
  Receive Date: 20130614
  Receipt Date: 20130614
  Transmission Date: 20140414
  Serious: Yes (Hospitalization, Other)
  Sender: FDA-Public Use
  Company Number: ZA-ASTRAZENECA-2013SE41743

PATIENT
  Age: 43 Year
  Sex: Female

DRUGS (9)
  1. NEXIAM IV [Suspect]
     Route: 042
     Dates: start: 20130528
  2. NEXIAM IV [Interacting]
     Route: 042
     Dates: start: 20130529
  3. NEXIAM IV [Interacting]
     Route: 042
     Dates: start: 20130530
  4. NEXIAM [Interacting]
     Route: 048
     Dates: start: 20130530, end: 20130531
  5. KEPPRA [Interacting]
     Indication: EPILEPSY
     Route: 048
  6. RIVOTRIL [Interacting]
     Route: 048
  7. TEGRETOL [Interacting]
     Indication: EPILEPSY
     Route: 048
  8. DEXAMETHASONE [Concomitant]
  9. BETANOID [Concomitant]

REACTIONS (2)
  - Drug interaction [Unknown]
  - Ataxia [Recovered/Resolved]
